FAERS Safety Report 5911530-5 (Version None)
Quarter: 2008Q4

REPORT INFORMATION
  Report Type: 
  Country: None (occurrence: None)
  Receive Date: 20081002
  Receipt Date: 20080922
  Transmission Date: 20090506
  Serious: Yes (Life-Threatening, Hospitalization)
  Sender: FDA-Public Use
  Company Number: MEDI-0006453

PATIENT
  Sex: Male

DRUGS (6)
  1. SYNAGIS [Suspect]
     Dates: start: 20070927, end: 20071221
  2. SYNAGIS [Suspect]
     Dates: start: 20070927
  3. SYNAGIS [Suspect]
     Dates: start: 20071025
  4. SYNAGIS [Suspect]
     Dates: start: 20071123
  5. SYNAGIS [Suspect]
  6. SYNAGIS [Suspect]

REACTIONS (3)
  - COUGH [None]
  - RESPIRATORY ARREST [None]
  - WHEEZING [None]
